FAERS Safety Report 10311517 (Version 5)
Quarter: 2015Q2

REPORT INFORMATION
  Report Type: Spontaneous
  Country: US (occurrence: US)
  Receive Date: 20140717
  Receipt Date: 20150520
  Transmission Date: 20150821
  Serious: Yes (Other)
  Sender: FDA-Public Use
  Company Number: US-GLAXOSMITHKLINE-A1075711A

PATIENT
  Sex: Male

DRUGS (1)
  1. VOTRIENT [Suspect]
     Active Substance: PAZOPANIB HYDROCHLORIDE
     Indication: RENAL CANCER
     Dosage: 800 MG, QD
     Route: 048
     Dates: start: 20140403, end: 20150407

REACTIONS (10)
  - Anxiety [Not Recovered/Not Resolved]
  - Headache [Unknown]
  - Malaise [Unknown]
  - Insomnia [Unknown]
  - Rash [Unknown]
  - Gait disturbance [Unknown]
  - Drug ineffective [Recovered/Resolved]
  - Arthralgia [Unknown]
  - Pain in extremity [Unknown]
  - Posterior reversible encephalopathy syndrome [Unknown]
